APPROVED DRUG PRODUCT: CITALOPRAM HYDROBROMIDE
Active Ingredient: CITALOPRAM HYDROBROMIDE
Strength: EQ 10MG BASE
Dosage Form/Route: TABLET;ORAL
Application: A077052 | Product #001
Applicant: SUN PHARMACEUTICAL INDUSTRIES INC
Approved: Jul 3, 2006 | RLD: No | RS: No | Type: DISCN